FAERS Safety Report 4501663-2 (Version None)
Quarter: 2004Q4

REPORT INFORMATION
  Report Type: 
  Country: None (occurrence: None)
  Receive Date: 20041109
  Receipt Date: 20041029
  Transmission Date: 20050328
  Serious: Yes (Hospitalization)
  Sender: FDA-Public Use
  Company Number: 2004UW22085

PATIENT

DRUGS (1)
  1. IRESSA [Suspect]
     Indication: NEOPLASM MALIGNANT

REACTIONS (2)
  - DEHYDRATION [None]
  - DISEASE PROGRESSION [None]
